FAERS Safety Report 15409286 (Version 1)
Quarter: 2018Q3

REPORT INFORMATION
  Report Type: Spontaneous
  Country: US (occurrence: US)
  Receive Date: 20180920
  Receipt Date: 20180920
  Transmission Date: 20181010
  Serious: No
  Sender: FDA-Public Use
  Company Number: US-GE HEALTHCARE LIFE SCIENCES-2018CSU002791

PATIENT
  Age: 55 Year
  Sex: Male

DRUGS (8)
  1. MYOVIEW [Suspect]
     Active Substance: TECHNETIUM TC-99M TETROFOSMIN
     Indication: MYOCARDIAL INFARCTION
     Dosage: 362.6 MBQ, SINGLE
     Route: 042
     Dates: start: 20180718, end: 20180718
  2. BABY ASPIRIN [Concomitant]
     Active Substance: ASPIRIN
     Dosage: 81 MG, UNK
  3. LOSARTAN. [Concomitant]
     Active Substance: LOSARTAN
     Dosage: 25 MG, QD
  4. CITALOPRAM [Concomitant]
     Active Substance: CITALOPRAM HYDROBROMIDE
     Dosage: 10 MG, QD
  5. MULTIVITAMIN                       /00097801/ [Concomitant]
     Active Substance: VITAMINS
  6. ATORVASTATIN [Concomitant]
     Active Substance: ATORVASTATIN
  7. AMLODIPINE [Concomitant]
     Active Substance: AMLODIPINE BESYLATE
     Dosage: 2.5 MG, QD
  8. TECHNETIUM TC 99M [Concomitant]
     Active Substance: TECHNETIUM TC-99M

REACTIONS (1)
  - Lip swelling [Unknown]

NARRATIVE: CASE EVENT DATE: 20180718
